FAERS Safety Report 20123555 (Version 3)
Quarter: 2022Q4

REPORT INFORMATION
  Report Type: Spontaneous
  Country: CA (occurrence: CA)
  Receive Date: 20211129
  Receipt Date: 20221214
  Transmission Date: 20230112
  Serious: Yes (Hospitalization, Other)
  Sender: FDA-Public Use
  Company Number: CA-AstraZeneca-2021A810448

PATIENT
  Age: 56 Year
  Sex: Female
  Weight: 80 kg

DRUGS (22)
  1. ALVESCO [Suspect]
     Active Substance: CICLESONIDE
     Indication: Product used for unknown indication
     Dosage: UNKNOWN
     Route: 055
  2. SYMBICORT [Suspect]
     Active Substance: BUDESONIDE\FORMOTEROL FUMARATE DIHYDRATE
     Indication: Product used for unknown indication
     Dosage: 2 DF, TWO TIMES A DAY
     Route: 055
  3. ALBUTEROL [Suspect]
     Active Substance: ALBUTEROL
     Indication: Asthma
     Route: 065
  4. SINGULAIR [Suspect]
     Active Substance: MONTELUKAST SODIUM
     Indication: Product used for unknown indication
     Route: 065
  5. THEOPHYLLINE [Suspect]
     Active Substance: THEOPHYLLINE
     Indication: Product used for unknown indication
     Dosage: 600 MG, 1 EVERY 1 DAY
     Route: 065
  6. UNIPHYL [Suspect]
     Active Substance: THEOPHYLLINE ANHYDROUS
     Indication: Product used for unknown indication
     Route: 048
  7. ADVAIR HFA [Suspect]
     Active Substance: FLUTICASONE PROPIONATE\SALMETEROL XINAFOATE
     Indication: Asthma
     Route: 065
  8. ATROVENT [Suspect]
     Active Substance: IPRATROPIUM BROMIDE
     Indication: Product used for unknown indication
     Dosage: 8 DOSAGE FROM DAILY
     Route: 065
  9. FLUTICASONE FUROATE [Suspect]
     Active Substance: FLUTICASONE FUROATE
     Indication: Asthma
     Route: 065
  10. FLOVENT [Suspect]
     Active Substance: FLUTICASONE PROPIONATE
     Indication: Asthma
     Route: 065
  11. PREDNISONE [Suspect]
     Active Substance: PREDNISONE
     Indication: Product used for unknown indication
     Dosage: 100 MG EVERY ONE DAY
     Route: 048
  12. GLYCOPYRROLATE [Suspect]
     Active Substance: GLYCOPYRROLATE
     Indication: Product used for unknown indication
     Dosage: 50 MG, EVERY 1 DAY
     Route: 065
  13. BUPROPION HYDROCHLORIDE [Concomitant]
     Active Substance: BUPROPION HYDROCHLORIDE
     Indication: Depression
  14. CETIRIZINE HYDROCHLORIDE [Concomitant]
     Active Substance: CETIRIZINE HYDROCHLORIDE
     Indication: Hypersensitivity
  15. ESTROGENS, CONJUGATED\MEDROGESTONE [Concomitant]
     Active Substance: ESTROGENS, CONJUGATED\MEDROGESTONE
     Indication: Product used for unknown indication
  16. DULOXETINE HYDROCHLORIDE [Concomitant]
     Active Substance: DULOXETINE HYDROCHLORIDE
     Indication: Depression
  17. ERGOCALCIFEROL [Concomitant]
     Active Substance: ERGOCALCIFEROL
     Indication: Product used for unknown indication
  18. ESOMEPRAZOLE MAGNESIUM [Concomitant]
     Active Substance: ESOMEPRAZOLE MAGNESIUM
     Indication: Gastrooesophageal reflux disease
  19. PANTOPRAZOLE SODIUM ANHYDROUS [Concomitant]
     Active Substance: PANTOPRAZOLE SODIUM ANHYDROUS
     Indication: Product used for unknown indication
  20. PAROXETINE HYDROCHLORIDE [Concomitant]
     Active Substance: PAROXETINE HYDROCHLORIDE
     Indication: Product used for unknown indication
  21. VALSARTAN [Concomitant]
     Active Substance: VALSARTAN
     Indication: Product used for unknown indication
  22. HYDROCHLORTHIAZIDE;VALSARTAN [Concomitant]
     Indication: Product used for unknown indication

REACTIONS (28)
  - Affective disorder [Recovering/Resolving]
  - Ankle fracture [Recovering/Resolving]
  - Breath sounds abnormal [Recovering/Resolving]
  - Bronchial disorder [Unknown]
  - Bronchial haemorrhage [Recovering/Resolving]
  - Condition aggravated [Recovering/Resolving]
  - Endometrial ablation [Recovering/Resolving]
  - Granuloma [Recovering/Resolving]
  - Herpes zoster [Recovering/Resolving]
  - Infection [Recovering/Resolving]
  - Lower respiratory tract infection [Recovering/Resolving]
  - Exposure during pregnancy [Recovering/Resolving]
  - Nasal turbinate hypertrophy [Recovering/Resolving]
  - Oxygen saturation decreased [Recovering/Resolving]
  - Respiratory disorder [Recovering/Resolving]
  - Rhinitis [Recovering/Resolving]
  - Rhonchi [Recovering/Resolving]
  - Sinus tachycardia [Recovering/Resolving]
  - Therapeutic product effect incomplete [Recovering/Resolving]
  - Bronchial neoplasm [Recovering/Resolving]
  - Asthma [Recovering/Resolving]
  - Dyspnoea [Recovering/Resolving]
  - Nasal congestion [Recovering/Resolving]
  - Obstructive airways disorder [Recovering/Resolving]
  - Sinusitis [Recovering/Resolving]
  - Weight increased [Recovering/Resolving]
  - Hypersensitivity [Recovering/Resolving]
  - Wheezing [Recovering/Resolving]
